FAERS Safety Report 18080823 (Version 1)
Quarter: 2020Q3

REPORT INFORMATION
  Report Type: Spontaneous
  Country: FR (occurrence: FR)
  Receive Date: 20200728
  Receipt Date: 20200728
  Transmission Date: 20201103
  Serious: Yes (Other)
  Sender: FDA-Public Use
  Company Number: FR-MYLANLABS-2020M1066684

PATIENT
  Age: 11 Year
  Sex: Male
  Weight: 47.5 kg

DRUGS (4)
  1. IOMERON [Suspect]
     Active Substance: IOMEPROL
     Indication: COMPUTERISED TOMOGRAM
     Dosage: 1 DOSAGE FORM ( (350 MG IODE/ML)
     Route: 042
     Dates: start: 20200518, end: 20200518
  2. CASPOFUNGINE OHRE PHARMA [Suspect]
     Active Substance: CASPOFUNGIN ACETATE
     Indication: PERITONITIS
     Dosage: 50 MILLIGRAM, QD
     Route: 042
     Dates: start: 20200517, end: 20200521
  3. VANCOMYCIN MYLAN [Suspect]
     Active Substance: VANCOMYCIN
     Indication: PERITONITIS
     Dosage: 3000 MILLIGRAM, QD
     Route: 042
     Dates: start: 20200506, end: 20200518
  4. PIPERACILLIN AND TAZOBACTAM [Suspect]
     Active Substance: PIPERACILLIN SODIUM\TAZOBACTAM SODIUM
     Indication: PERITONITIS
     Dosage: 16 GRAM, QD
     Route: 042
     Dates: start: 20200506, end: 20200518

REACTIONS (1)
  - Acute kidney injury [Recovered/Resolved]

NARRATIVE: CASE EVENT DATE: 20200519
